FAERS Safety Report 4893538-4 (Version None)
Quarter: 2006Q1

REPORT INFORMATION
  Report Type: 
  Country: None (occurrence: None)
  Receive Date: 20060127
  Receipt Date: 20060118
  Transmission Date: 20060701
  Serious: Yes (Hospitalization, Disabling)
  Sender: FDA-Public Use
  Company Number: 2006UW00904

PATIENT
  Age: 22 Year
  Sex: Female
  Weight: 54 kg

DRUGS (2)
  1. DIPRIVAN [Suspect]
     Indication: GENERAL ANAESTHESIA
     Route: 042
     Dates: start: 20050928, end: 20050928
  2. BIRTH CONTROL PILLS [Concomitant]

REACTIONS (4)
  - AMNESIA [None]
  - COMA [None]
  - SPEECH DISORDER [None]
  - STATUS EPILEPTICUS [None]
